FAERS Safety Report 17065907 (Version 1)
Quarter: 2019Q4

REPORT INFORMATION
  Report Type: Spontaneous
  Country: IT (occurrence: IT)
  Receive Date: 20191122
  Receipt Date: 20191122
  Transmission Date: 20200122
  Serious: Yes (Hospitalization)
  Sender: FDA-Public Use
  Company Number: IT-MYLANLABS-2019M1112072

PATIENT
  Age: 65 Year
  Sex: Male
  Weight: 80 kg

DRUGS (15)
  1. ISORAM [Concomitant]
     Dosage: UNK
     Route: 042
     Dates: start: 20190516, end: 20190606
  2. PIPERACILLINA E TAZOBACTAM KABI [Suspect]
     Active Substance: PIPERACILLIN SODIUM\TAZOBACTAM SODIUM
     Indication: PNEUMONITIS
     Dosage: 12 GRAM, QD
     Route: 042
     Dates: start: 20190605, end: 20190610
  3. BINOCRIT [Concomitant]
     Active Substance: ERYTHROPOIETIN
     Indication: NEPHROGENIC ANAEMIA
     Dosage: UNK
     Route: 058
     Dates: start: 20190516, end: 20190614
  4. LINEZOLID. [Suspect]
     Active Substance: LINEZOLID
     Indication: PNEUMONITIS
     Dosage: 1200 MILLIGRAM, QD
     Route: 042
     Dates: start: 20190605, end: 20190610
  5. AMBROXOL DOROM [Concomitant]
     Dosage: 15 MILLIGRAM, QD
     Route: 055
     Dates: start: 20190523, end: 20190614
  6. JUMEX [Concomitant]
     Active Substance: SELEGILINE HYDROCHLORIDE
     Indication: PARKINSON^S DISEASE
     Dosage: 5 MILLIGRAM, QD
     Route: 048
     Dates: start: 20190517, end: 20190606
  7. METFORMIN [Concomitant]
     Active Substance: METFORMIN HYDROCHLORIDE
     Indication: DIABETES MELLITUS
     Dosage: 1500 MILLIGRAM, QD
     Route: 048
     Dates: start: 20190523, end: 20190606
  8. CLENIL                             /00212602/ [Concomitant]
     Active Substance: BECLOMETHASONE DIPROPIONATE
     Indication: ASTHMA
     Dosage: 0.4 MILLIGRAM, QD
     Route: 055
     Dates: start: 20190523, end: 20190614
  9. CLEXANE [Concomitant]
     Active Substance: ENOXAPARIN SODIUM
     Indication: EMBOLISM VENOUS
     Dosage: UNK
     Route: 058
     Dates: start: 20190502, end: 20190614
  10. LOPERAMIDE [Concomitant]
     Active Substance: LOPERAMIDE
     Indication: DIARRHOEA
     Dosage: 4 MILLIGRAM, QD
     Route: 048
     Dates: start: 20190606, end: 20190612
  11. VANCOMICINA HIKMA [Concomitant]
     Active Substance: VANCOMYCIN HYDROCHLORIDE
     Indication: INFECTION
     Dosage: 2 GRAM, QD
     Route: 048
     Dates: start: 20190529, end: 20190607
  12. CARDICOR [Concomitant]
     Active Substance: BISOPROLOL
     Indication: CARDIAC FAILURE CHRONIC
     Dosage: 5 MILLIGRAM, QD
     Route: 048
     Dates: start: 20190517, end: 20190614
  13. ESOMEPRAZOLO EG [Concomitant]
     Indication: GASTROOESOPHAGEAL REFLUX DISEASE
     Dosage: 20 MILLIGRAM, QD
     Route: 048
     Dates: start: 20190502, end: 20190614
  14. BRILIQUE [Concomitant]
     Active Substance: TICAGRELOR
     Indication: ARTERIAL THROMBOSIS
     Dosage: 180 MILLIGRAM, QD
     Route: 048
     Dates: start: 20190502, end: 20190614
  15. LEVOTIROXINA TEVA [Concomitant]
     Indication: HYPOTHYROIDISM
     Dosage: 100 MICROGRAM, QD
     Route: 048
     Dates: start: 20190502, end: 20190614

REACTIONS (3)
  - Drug ineffective [Recovering/Resolving]
  - Pneumonitis [Recovering/Resolving]
  - Respiratory failure [Recovering/Resolving]

NARRATIVE: CASE EVENT DATE: 20190606
